FAERS Safety Report 8341542-6 (Version None)
Quarter: 2012Q2

REPORT INFORMATION
  Report Type: 
  Country: None (occurrence: None)
  Receive Date: 20120507
  Receipt Date: 20100430
  Transmission Date: 20120825
  Serious: No
  Sender: FDA-Public Use
  Company Number: US-TEVA-2010001394

PATIENT
  Sex: Female

DRUGS (1)
  1. TREANDA [Suspect]
     Indication: NON-HODGKIN'S LYMPHOMA
     Route: 042
     Dates: start: 20100301

REACTIONS (4)
  - INFUSION SITE SWELLING [None]
  - INFUSION SITE PAIN [None]
  - INFUSION RELATED REACTION [None]
  - INFUSION SITE IRRITATION [None]
